FAERS Safety Report 9822457 (Version 1)
Quarter: 2014Q1

REPORT INFORMATION
  Report Type: Spontaneous
  Country: IT (occurrence: IT)
  Receive Date: 20140116
  Receipt Date: 20140116
  Transmission Date: 20141002
  Serious: Yes (Other)
  Sender: FDA-Public Use
  Company Number: IT-SUN PHARMACEUTICAL INDUSTRIES LTD-2014SUN00026

PATIENT
  Age: 65 Year
  Sex: Female

DRUGS (5)
  1. GEMCITABINA SUN 200 MG POLVERE PER SOLUZIONE PER INFUSIONE [Suspect]
     Indication: PANCREATIC CARCINOMA
     Dosage: 1000 MG/M2, UNK
     Route: 065
     Dates: start: 201003, end: 201009
  2. INSULIN [Concomitant]
  3. ALDACTONE [Concomitant]
     Dosage: 100 MG, UNK
  4. DILATREND [Concomitant]
  5. CARDIOASPIRIN [Concomitant]

REACTIONS (2)
  - Capillary leak syndrome [Recovered/Resolved]
  - Pulmonary hypertension [Recovered/Resolved]
